FAERS Safety Report 6648842-6 (Version None)
Quarter: 2010Q1

REPORT INFORMATION
  Report Type: 
  Country: None (occurrence: None)
  Receive Date: 20100324
  Receipt Date: 20100316
  Transmission Date: 20100710
  Serious: Yes (Death, Hospitalization)
  Sender: FDA-Public Use
  Company Number: PHHY2010US15604

PATIENT
  Sex: Female
  Weight: 79.28 kg

DRUGS (2)
  1. EXJADE [Suspect]
     Indication: MYELODYSPLASTIC SYNDROME
     Dosage: 1625 MG DAILY
     Route: 048
     Dates: start: 20080701
  2. EXJADE [Suspect]
     Indication: TRANSFUSION

REACTIONS (2)
  - DEATH [None]
  - GALLBLADDER OPERATION [None]
